FAERS Safety Report 6132783-7 (Version None)
Quarter: 2009Q1

REPORT INFORMATION
  Report Type: 
  Country: None (occurrence: None)
  Receive Date: 20090325
  Receipt Date: 20090325
  Transmission Date: 20090719
  Serious: Yes (Hospitalization)
  Sender: FDA-Public Use
  Company Number: None

PATIENT
  Age: 77 Year
  Sex: Male

DRUGS (1)
  1. DOCUSATE/SENNOSIDES [Suspect]
     Indication: CONSTIPATION
     Dosage: 2 TABS HS PO
     Route: 048
     Dates: start: 20080501, end: 20090228

REACTIONS (1)
  - DIARRHOEA [None]
